FAERS Safety Report 7378153-5 (Version None)
Quarter: 2011Q1

REPORT INFORMATION
  Report Type: 
  Country: None (occurrence: None)
  Receive Date: 20110323
  Receipt Date: 20110323
  Transmission Date: 20110831
  Serious: Yes (Death)
  Sender: FDA-Public Use
  Company Number: None

PATIENT
  Age: 43 Year
  Sex: Female
  Weight: 58.9676 kg

DRUGS (1)
  1. FENTANYL [Suspect]
     Indication: INTERVERTEBRAL DISC PROTRUSION
     Dosage: APPLY 1 PATCH EVERY 72 HOURS TRANSDERMAL
     Route: 062
     Dates: start: 20090225, end: 20090308

REACTIONS (3)
  - OVERDOSE [None]
  - MEDICATION ERROR [None]
  - PRODUCT QUALITY ISSUE [None]
